FAERS Safety Report 7418305-9 (Version None)
Quarter: 2011Q2

REPORT INFORMATION
  Report Type: 
  Country: None (occurrence: None)
  Receive Date: 20110408
  Receipt Date: 20110329
  Transmission Date: 20111010
  Serious: Yes (Other)
  Sender: FDA-Public Use
  Company Number: 018705

PATIENT
  Sex: Male
  Weight: 37 kg

DRUGS (13)
  1. ZOFRAN [Concomitant]
  2. TRILEPTAL [Concomitant]
  3. PREVACID [Concomitant]
  4. ADVAIR DISKUS 100/50 [Concomitant]
  5. LACOSAMIDE [Suspect]
     Indication: CONVULSION
     Dosage: SEE IMAGE ORAL
     Route: 048
     Dates: start: 20100801, end: 20100101
  6. LACOSAMIDE [Suspect]
     Indication: CONVULSION
     Dosage: SEE IMAGE ORAL
     Route: 048
     Dates: start: 20100501, end: 20100101
  7. LACOSAMIDE [Suspect]
     Indication: CONVULSION
     Dosage: SEE IMAGE ORAL
     Route: 048
     Dates: start: 20100101, end: 20101101
  8. DEPAKOTE [Concomitant]
  9. XOPENEX [Concomitant]
  10. ZOMIG [Concomitant]
  11. CLONIDINE [Concomitant]
  12. SINGULAIR [Concomitant]
  13. MAXALT [Concomitant]

REACTIONS (5)
  - GRAND MAL CONVULSION [None]
  - PARTIAL SEIZURES [None]
  - DROOLING [None]
  - MUSCLE SPASMS [None]
  - HYPOAESTHESIA [None]
